FAERS Safety Report 8798558 (Version 1)
Quarter: 2012Q4

REPORT INFORMATION
  Report Type: Report from Study
  Country: JP (occurrence: JP)
  Receive Date: 20120920
  Receipt Date: 20120920
  Transmission Date: 20130627
  Serious: Yes (Other)
  Sender: FDA-Public Use
  Company Number: JP-VERTEX PHARMACEUTICAL INC.-2012-021510

PATIENT
  Age: 57 Year
  Sex: Male

DRUGS (16)
  1. VX-950 [Suspect]
     Indication: HEPATITIS C
     Dosage: 2250 mg, qd
     Route: 048
     Dates: start: 20120530, end: 20120704
  2. VX-950 [Suspect]
     Dosage: 1500 mg, qd
     Route: 048
     Dates: start: 20120705, end: 20120822
  3. RIBAVIRIN [Suspect]
     Indication: HEPATITIS C
     Dosage: 800 mg, qd
     Route: 048
     Dates: start: 20120530, end: 20120613
  4. RIBAVIRIN [Suspect]
     Dosage: 400 mg, qd
     Route: 048
     Dates: start: 20120614
  5. PEGINTERFERON ALFA-2B [Suspect]
     Indication: HEPATITIS C
     Dosage: 1.5 UNK, UNK
     Route: 058
     Dates: start: 20120530
  6. PEGINTERFERON ALFA-2B [Suspect]
     Dosage: 1.5 UNK, UNK
     Route: 058
     Dates: end: 20120725
  7. PEGINTERFERON ALFA-2B [Suspect]
     Dosage: 1.1 UNK, UNK
     Route: 058
     Dates: start: 20120726
  8. NU-LOTAN [Concomitant]
     Dosage: 50 mg, qd
     Route: 048
  9. LOXONIN [Concomitant]
     Dosage: 60 UNK, prn
     Route: 048
  10. AMOBAN [Concomitant]
     Dosage: 7.5 mg, prn
     Route: 048
  11. GLACTIV [Concomitant]
     Dosage: 50 mg, qd
     Route: 048
  12. EPADEL-S [Concomitant]
     Dosage: 1800 mg, qd
     Route: 048
     Dates: start: 20120530
  13. FEBURIC [Concomitant]
     Dosage: 20 mg, qd
     Route: 048
     Dates: start: 20120530
  14. FEBURIC [Concomitant]
     Dosage: 60 mg, qd
     Route: 048
  15. DOMPERIDONE [Concomitant]
     Dosage: 10 mg, prn
     Route: 048
     Dates: start: 20120609
  16. DOMPERIDONE [Concomitant]
     Dosage: 30 mg, qd
     Route: 048

REACTIONS (1)
  - Retinopathy [Recovered/Resolved]
